FAERS Safety Report 23328125 (Version 1)
Quarter: 2023Q4

REPORT INFORMATION
  Report Type: Spontaneous
  Country: ES (occurrence: ES)
  Receive Date: 20231221
  Receipt Date: 20231221
  Transmission Date: 20240110
  Serious: Yes (Other)
  Sender: FDA-Public Use
  Company Number: ES-WOODWARD-2023-ES-000177

PATIENT
  Age: 61 Year
  Sex: Male

DRUGS (1)
  1. DUTASTERIDE\TAMSULOSIN HYDROCHLORIDE [Suspect]
     Active Substance: DUTASTERIDE\TAMSULOSIN HYDROCHLORIDE
     Indication: Prostatism
     Dosage: 1 DF, QD, 30 CAPSULES
     Route: 048
     Dates: start: 20230818, end: 20231116

REACTIONS (3)
  - Anxiety [Unknown]
  - Polyarthritis [Unknown]
  - Rhinitis [Unknown]

NARRATIVE: CASE EVENT DATE: 20230825
